FAERS Safety Report 21706420 (Version 4)
Quarter: 2024Q1

REPORT INFORMATION
  Report Type: Spontaneous
  Country: FR (occurrence: FR)
  Receive Date: 20221209
  Receipt Date: 20240311
  Transmission Date: 20240410
  Serious: Yes (Life-Threatening, Hospitalization, Other)
  Sender: FDA-Public Use
  Company Number: FR-009507513-2212FRA002154

PATIENT
  Age: 52 Year
  Sex: Male
  Weight: 74 kg

DRUGS (4)
  1. DELSTRIGO [Suspect]
     Active Substance: DORAVIRINE\LAMIVUDINE\TENOFOVIR DISOPROXIL FUMARATE
     Indication: HIV infection
     Dosage: ONE TABLET (1 DOSAGE FORM ) DAILY (QD)
     Route: 048
     Dates: start: 20221024
  2. SERETIDE [Concomitant]
     Active Substance: FLUTICASONE PROPIONATE\SALMETEROL XINAFOATE
     Indication: Bronchiectasis
     Dosage: 1 PUFF MORNING AND NIGHT; TAKEN FOR SEVERAL YEARS
  3. VENTOLIN [Concomitant]
     Active Substance: ALBUTEROL SULFATE
     Indication: Bronchiectasis
     Dosage: UNK, PRN; TAKEN FOR SEVERAL YEARS
  4. CHOLECALCIFEROL [Concomitant]
     Active Substance: CHOLECALCIFEROL
     Dosage: 1 AMPOULE (DOSAGE FORM) PER MONTH (QM); TAKEN FOR SEVERAL YEARS

REACTIONS (8)
  - Toxic epidermal necrolysis [Recovering/Resolving]
  - Dysphagia [Unknown]
  - Skin plaque [Unknown]
  - Blindness unilateral [Unknown]
  - Amniotic membrane graft [Unknown]
  - Ageusia [Unknown]
  - Tongue exfoliation [Unknown]
  - Depression [Unknown]

NARRATIVE: CASE EVENT DATE: 20221118
